FAERS Safety Report 5102787-1 (Version None)
Quarter: 2006Q3

REPORT INFORMATION
  Report Type: 
  Country: None (occurrence: None)
  Receive Date: 20060907
  Receipt Date: 20060822
  Transmission Date: 20061208
  Serious: Yes (Death, Other)
  Sender: FDA-Public Use
  Company Number: DE200608004685

PATIENT
  Sex: Female

DRUGS (3)
  1. GEMZAR [Suspect]
     Indication: OVARIAN CANCER
     Dosage: 1000 MG/M2, INTRAVENOUS
     Route: 042
     Dates: start: 20060201, end: 20060601
  2. ANTIEMETICS AND ANTINAUSEANTS [Concomitant]
  3. DIURETICS [Concomitant]

REACTIONS (10)
  - COLITIS ISCHAEMIC [None]
  - DRY GANGRENE [None]
  - EXTREMITY NECROSIS [None]
  - MALIGNANT NEOPLASM PROGRESSION [None]
  - METASTASES TO PERITONEUM [None]
  - METASTASES TO PLEURA [None]
  - MICROANGIOPATHY [None]
  - NEOPLASM PROGRESSION [None]
  - PERITONITIS [None]
  - SHOCK [None]
